FAERS Safety Report 5534824-4 (Version None)
Quarter: 2007Q4

REPORT INFORMATION
  Report Type: 
  Country: None (occurrence: None)
  Receive Date: 20071120
  Receipt Date: 20070830
  Transmission Date: 20080405
  Serious: No
  Sender: FDA-Public Use
  Company Number: WAES 0708USA05714

PATIENT
  Age: 58 Year
  Sex: Female

DRUGS (17)
  1. JANUVIA [Suspect]
     Indication: TYPE 2 DIABETES MELLITUS
     Dosage: PO, 100 MG/DAILY/PO
     Route: 046
     Dates: start: 20070816, end: 20070829
  2. JANUVIA [Suspect]
     Indication: TYPE 2 DIABETES MELLITUS
     Dosage: PO, 100 MG/DAILY/PO
     Route: 046
     Dates: start: 20070830
  3. ATROVENT [Concomitant]
  4. BENEFIBER [Concomitant]
  5. CRESTOR [Concomitant]
  6. DIAZEPAN [Concomitant]
  7. LOPRESSOR [Concomitant]
  8. NEXIUM [Concomitant]
  9. PLAVIX [Concomitant]
  10. STARLIX [Concomitant]
  11. SYNTHROID [Concomitant]
  12. TRICOR [Concomitant]
  13. TYLENOL [Concomitant]
  14. ALBUTEROL [Concomitant]
  15. ASPIRIN [Concomitant]
  16. CLONIDINE [Concomitant]
  17. NITROGLYCERIN [Concomitant]

REACTIONS (2)
  - FEELING JITTERY [None]
  - WRONG TECHNIQUE IN DRUG USAGE PROCESS [None]
